FAERS Safety Report 8074105-0 (Version None)
Quarter: 2012Q1

REPORT INFORMATION
  Report Type: 
  Country: None (occurrence: None)
  Receive Date: 20120126
  Receipt Date: 20120124
  Transmission Date: 20120608
  Serious: Yes (Hospitalization, Other)
  Sender: FDA-Public Use
  Company Number: JP-BAYER-2012-007699

PATIENT

DRUGS (2)
  1. ACETYLSALICYLIC ACID SRT [Suspect]
     Indication: ISCHAEMIC STROKE
     Dosage: DAILY DOSE 100 MG
  2. CILOSTAZOL [Suspect]
     Indication: ISCHAEMIC STROKE
     Dosage: DAILY DOSE 200 MG

REACTIONS (3)
  - HAEMORRHAGE [None]
  - HAEMOPTYSIS [None]
  - HAEMATOCHEZIA [None]
